FAERS Safety Report 13846857 (Version 1)
Quarter: 2017Q3

REPORT INFORMATION
  Report Type: Spontaneous
  Country: US (occurrence: US)
  Receive Date: 20170808
  Receipt Date: 20170808
  Transmission Date: 20171127
  Serious: No
  Sender: FDA-Public Use
  Company Number: US-SA-2017SA105623

PATIENT
  Age: 85 Year
  Sex: Male

DRUGS (1)
  1. XYZAL ALLERGY 24HR [Suspect]
     Active Substance: LEVOCETIRIZINE DIHYDROCHLORIDE
     Indication: SINUS DISORDER
     Route: 065

REACTIONS (5)
  - Rash [Unknown]
  - Pruritus generalised [Unknown]
  - Hypoacusis [Unknown]
  - Erythema [Unknown]
  - Drug ineffective [Unknown]
